FAERS Safety Report 12399281 (Version 1)
Quarter: 2016Q2

REPORT INFORMATION
  Report Type: Spontaneous
  Country: US (occurrence: US)
  Receive Date: 20160524
  Receipt Date: 20160524
  Transmission Date: 20160815
  Serious: Yes (Other)
  Sender: FDA-Public Use
  Company Number: US-MYLANLABS-2016M1021421

PATIENT

DRUGS (2)
  1. ERLOTINIB [Concomitant]
     Active Substance: ERLOTINIB
     Indication: PANCREATIC CARCINOMA
     Route: 048
  2. GEMCITABINE [Suspect]
     Active Substance: GEMCITABINE\GEMCITABINE HYDROCHLORIDE
     Indication: PANCREATIC CARCINOMA
     Route: 065

REACTIONS (4)
  - Sepsis [Unknown]
  - Febrile neutropenia [Unknown]
  - Histoplasmosis disseminated [Unknown]
  - Sinus tachycardia [Unknown]
